FAERS Safety Report 15241962 (Version 2)
Quarter: 2018Q3

REPORT INFORMATION
  Report Type: Spontaneous
  Country: US (occurrence: US)
  Receive Date: 20180806
  Receipt Date: 20180924
  Transmission Date: 20181010
  Serious: No
  Sender: FDA-Public Use
  Company Number: US-ASTRAZENECA-2018SE92290

PATIENT
  Sex: Female
  Weight: 112.9 kg

DRUGS (9)
  1. VITAMIND [Concomitant]
  2. LOSARTAN /HCTZ [Concomitant]
     Indication: HYPERTENSION
     Dosage: 100/25, DAILY
     Route: 048
  3. CARVEDILOL. [Concomitant]
     Active Substance: CARVEDILOL
     Indication: HYPERTENSION
     Route: 048
  4. PRADAXA [Concomitant]
     Active Substance: DABIGATRAN ETEXILATE MESYLATE
     Indication: ANTICOAGULANT THERAPY
     Route: 048
  5. FLECAINIDE [Concomitant]
     Active Substance: FLECAINIDE
     Indication: ATRIAL FIBRILLATION
     Route: 048
  6. VENTOLIN [Concomitant]
     Active Substance: ALBUTEROL SULFATE
     Indication: INHALATION THERAPY
     Dosage: TWO PUFFS EVERY FOUR HOURS AS NEEDED
     Route: 055
  7. ALPRAZOLAM. [Concomitant]
     Active Substance: ALPRAZOLAM
     Indication: EMOTIONAL DISORDER
     Dosage: 0.5 UNITS DAILY
  8. ATORVASTATIN [Concomitant]
     Active Substance: ATORVASTATIN
     Route: 048
  9. SYMBICORT [Suspect]
     Active Substance: BUDESONIDE\FORMOTEROL FUMARATE DIHYDRATE
     Indication: ASTHMA
     Dosage: 160/4.5 UG, TWO INHALATIONS TWICE A DAY
     Route: 055
     Dates: start: 201801

REACTIONS (9)
  - Dyspnoea [Not Recovered/Not Resolved]
  - Body height decreased [Not Recovered/Not Resolved]
  - Visual impairment [Not Recovered/Not Resolved]
  - Device defective [Not Recovered/Not Resolved]
  - Device failure [Unknown]
  - Discomfort [Not Recovered/Not Resolved]
  - Cough [Recovered/Resolved]
  - Intentional device misuse [Not Recovered/Not Resolved]
  - Hypersensitivity [Not Recovered/Not Resolved]
